FAERS Safety Report 5191194-1 (Version None)
Quarter: 2006Q4

REPORT INFORMATION
  Report Type: 
  Country: None (occurrence: None)
  Receive Date: 20061218
  Receipt Date: 20061205
  Transmission Date: 20070319
  Serious: Yes (Life-Threatening, Hospitalization)
  Sender: FDA-Public Use
  Company Number: 2006137320

PATIENT
  Age: 65 Year
  Sex: Female
  Weight: 48.1 kg

DRUGS (5)
  1. UNASYN [Suspect]
     Indication: PNEUMONIA
     Dosage: 4.5 GRAM, (1.5 GRAM, 3 IN 1 D), INTRAVENOUS
     Route: 042
     Dates: start: 20061010, end: 20061012
  2. IRINOTECAN HCL [Suspect]
     Indication: OVARIAN CANCER
     Dosage: 180 MG (180 MG, FREQUENCY: QD), INTRAVENOUS
     Route: 042
     Dates: start: 20060518, end: 20060920
  3. MITOMYCIN [Suspect]
     Indication: OVARIAN CANCER
     Dosage: 9 MG (9 MG, FREQUENCY: QD), INTRAVENOUS
     Route: 042
     Dates: start: 20060518, end: 20060920
  4. CLARITHROMYCIN [Concomitant]
  5. WARFARIN SODIUM [Concomitant]

REACTIONS (2)
  - CONDITION AGGRAVATED [None]
  - INTERSTITIAL LUNG DISEASE [None]
